FAERS Safety Report 7002113 (Version 4)
Quarter: 2014Q2

REPORT INFORMATION
  Report Type: Spontaneous
  Country: US (occurrence: US)
  Receive Date: 20050330
  Receipt Date: 20131017
  Transmission Date: 20141212
  Serious: Yes (Disabling, Other)
  Sender: FDA-Public Use
  Company Number: US-PFIZER INC-2005048889

PATIENT
  Age: 55 Year
  Sex: Female
  Weight: 63 kg

DRUGS (18)
  1. PROVERA [Suspect]
     Indication: HORMONE REPLACEMENT THERAPY
     Dosage: UNK
     Route: 048
     Dates: start: 198603, end: 199806
  2. PROVERA [Suspect]
     Dosage: 10 MG, UNK
     Route: 048
     Dates: start: 199011, end: 199102
  3. PROVERA [Suspect]
     Dosage: 5 MG, UNK
     Route: 048
     Dates: start: 199102, end: 199105
  4. PROVERA [Suspect]
     Dosage: UNK
     Route: 048
     Dates: start: 199106, end: 200107
  5. PROVERA [Suspect]
     Dosage: UNK
     Route: 048
     Dates: start: 199111, end: 199812
  6. PROVERA [Suspect]
     Dosage: UNK
     Route: 048
     Dates: start: 199902, end: 200107
  7. PREMARIN [Suspect]
     Indication: HORMONE REPLACEMENT THERAPY
     Dosage: UNK
     Route: 048
     Dates: start: 198801, end: 198806
  8. OGEN [Suspect]
     Indication: HORMONE REPLACEMENT THERAPY
     Dosage: UNK
     Route: 048
     Dates: start: 199011, end: 199812
  9. OGEN [Suspect]
     Dosage: UNK
     Route: 048
     Dates: start: 199111, end: 199812
  10. MEDROXYPROGESTERONE ACETATE [Suspect]
     Indication: HORMONE REPLACEMENT THERAPY
     Dosage: UNK
     Dates: start: 1986, end: 200107
  11. NORETHINDRONE ACETATE [Suspect]
     Indication: HORMONE REPLACEMENT THERAPY
     Dosage: UNK
     Route: 048
  12. CYCRIN [Suspect]
     Indication: HORMONE REPLACEMENT THERAPY
     Dosage: UNK
     Route: 048
  13. AYGESTIN [Suspect]
     Indication: HORMONE REPLACEMENT THERAPY
     Dosage: 5 MG, UNK
  14. ESTROPIPATE [Suspect]
     Indication: HORMONE REPLACEMENT THERAPY
     Dosage: UNK
     Dates: start: 199812, end: 200002
  15. ESTROPIPATE [Suspect]
     Dosage: 75 MG, UNK
     Dates: start: 200002, end: 200107
  16. SYNTHROID [Concomitant]
     Indication: THYROID DISORDER
     Dosage: UNK
     Dates: start: 1967
  17. HYDROXYZINE HYDROCHLORIDE [Concomitant]
     Indication: URTICARIA
     Dosage: UNK
     Dates: start: 200003
  18. VALTREX [Concomitant]
     Indication: HERPES VIRUS INFECTION
     Dosage: UNK
     Dates: start: 200003, end: 2002

REACTIONS (1)
  - Breast cancer female [Unknown]
